FAERS Safety Report 7953965-5 (Version None)
Quarter: 2011Q4

REPORT INFORMATION
  Report Type: 
  Country: None (occurrence: None)
  Receive Date: 20111129
  Receipt Date: 20111115
  Transmission Date: 20120403
  Serious: Yes (Hospitalization)
  Sender: FDA-Public Use
  Company Number: A0844604B

PATIENT

DRUGS (4)
  1. AMLODIPINE [Concomitant]
  2. MYCOPHENOLATE MOFETIL [Concomitant]
  3. PROMACTA [Suspect]
     Indication: THROMBOSIS
     Dosage: 75 MG / PER DAY / ORAL
     Route: 048
     Dates: start: 20100128, end: 20100223
  4. TACROLIMUS [Concomitant]

REACTIONS (1)
  - PULMONARY EMBOLISM [None]
